FAERS Safety Report 7061103-9 (Version None)
Quarter: 2010Q4

REPORT INFORMATION
  Report Type: 
  Country: None (occurrence: None)
  Receive Date: 20101026
  Receipt Date: 20101018
  Transmission Date: 20110411
  Serious: Yes (Hospitalization, Other)
  Sender: FDA-Public Use
  Company Number: US-PFIZER INC-2010082948

PATIENT
  Sex: Male

DRUGS (3)
  1. CHANTIX [Suspect]
     Indication: SMOKING CESSATION THERAPY
     Dosage: STARTER MONTH AND CONTINUOUS PACKS
     Dates: start: 20090624, end: 20090711
  2. LORTAB [Concomitant]
     Indication: ARTHRALGIA
     Dosage: UNK
     Dates: start: 19910101
  3. LORTAB [Concomitant]
     Indication: BACK PAIN

REACTIONS (2)
  - FOOT FRACTURE [None]
  - LOSS OF CONSCIOUSNESS [None]
